FAERS Safety Report 25270460 (Version 1)
Quarter: 2025Q2

REPORT INFORMATION
  Report Type: Spontaneous
  Country: US (occurrence: US)
  Receive Date: 20250505
  Receipt Date: 20250505
  Transmission Date: 20250717
  Serious: No
  Sender: BRISTOL-MYERS SQUIBB COMPANY
  Company Number: US-BRISTOL-MYERS SQUIBB COMPANY-2025-064555

PATIENT
  Age: 71 Year
  Sex: Male
  Weight: 92.99 kg

DRUGS (4)
  1. ELIQUIS [Suspect]
     Active Substance: APIXABAN
     Indication: Deep vein thrombosis
     Dosage: 10MG DOSE TWICE A DAY FOR OVER A WEEK
     Route: 048
     Dates: start: 2025
  2. ELIQUIS [Suspect]
     Active Substance: APIXABAN
     Dosage: TOOK 10 MG ONCE A DAY HIS FIRST TWO DAYS OF USING ELIQUIS
     Route: 048
     Dates: start: 2025
  3. ELIQUIS [Suspect]
     Active Substance: APIXABAN
     Route: 048
     Dates: start: 2025
  4. ROSUVASTATIN [Concomitant]
     Active Substance: ROSUVASTATIN
     Indication: Product used for unknown indication

REACTIONS (7)
  - Product availability issue [Unknown]
  - Treatment noncompliance [Unknown]
  - Peripheral swelling [Unknown]
  - Condition aggravated [Unknown]
  - Off label use [Unknown]
  - Pruritus [Unknown]
  - Blister [Unknown]

NARRATIVE: CASE EVENT DATE: 20250101
